FAERS Safety Report 20493008 (Version 1)
Quarter: 2022Q1

REPORT INFORMATION
  Report Type: Spontaneous
  Country: SI (occurrence: SI)
  Receive Date: 20220220
  Receipt Date: 20220220
  Transmission Date: 20220424
  Serious: Yes (Death, Hospitalization, Other)
  Sender: FDA-Public Use
  Company Number: SI-Accord-243830

PATIENT
  Age: 72 Year
  Sex: Male

DRUGS (14)
  1. MYCOPHENOLATE MOFETIL [Suspect]
     Active Substance: MYCOPHENOLATE MOFETIL
     Indication: Immunosuppression
  2. BASILIXIMAB [Suspect]
     Active Substance: BASILIXIMAB
     Indication: Immunosuppression
  3. CYCLOSPORINE [Suspect]
     Active Substance: CYCLOSPORINE
     Indication: Immunosuppression
  4. GANCICLOVIR [Suspect]
     Active Substance: GANCICLOVIR
     Dosage: INFUSION, POWDER
     Route: 042
  5. METHYLPREDNISOLONE [Suspect]
     Active Substance: METHYLPREDNISOLONE
     Indication: Immunosuppression
  6. FOSCARNET [Suspect]
     Active Substance: FOSCARNET
     Route: 065
  7. VALGANCICLOVIR HYDROCHLORIDE [Suspect]
     Active Substance: VALGANCICLOVIR HYDROCHLORIDE
     Dosage: 900 MILLIGRAM DAILY
     Route: 048
  8. VALGANCICLOVIR HYDROCHLORIDE [Concomitant]
     Active Substance: VALGANCICLOVIR HYDROCHLORIDE
     Indication: Prophylaxis
  9. ERTAPENEM SODIUM [Concomitant]
     Active Substance: ERTAPENEM SODIUM
     Indication: Antibiotic therapy
     Dosage: UNK
     Route: 065
  10. FLUCLOXACILLIN [Concomitant]
     Active Substance: FLUCLOXACILLIN
     Indication: Antibiotic therapy
     Dosage: UNK
     Route: 065
  11. VANCOMYCIN [Concomitant]
     Active Substance: VANCOMYCIN
     Indication: Antibiotic therapy
     Dosage: UNK
     Route: 065
  12. PIPERACILLIN AND TAZOBACTAM [Concomitant]
     Active Substance: PIPERACILLIN SODIUM\TAZOBACTAM SODIUM
     Indication: Antibiotic therapy
     Dosage: UNK
     Route: 065
  13. MEROPENEM [Concomitant]
     Active Substance: MEROPENEM
     Indication: Antibiotic therapy
     Dosage: UNK
     Route: 065
  14. FUROSEMIDE [Concomitant]
     Active Substance: FUROSEMIDE
     Indication: Drug therapy
     Dosage: UNK
     Route: 042

REACTIONS (8)
  - Leukopenia [Unknown]
  - Cytomegalovirus infection [Fatal]
  - Fungal infection [Fatal]
  - Multiple organ dysfunction syndrome [Fatal]
  - Glomerulonephropathy [Fatal]
  - Respiratory tract infection fungal [Fatal]
  - Renal tubular disorder [Fatal]
  - Pneumocystis jirovecii infection [Fatal]
